FAERS Safety Report 8481926-9 (Version None)
Quarter: 2012Q3

REPORT INFORMATION
  Report Type: 
  Country: None (occurrence: None)
  Receive Date: 20120702
  Receipt Date: 20120618
  Transmission Date: 20120928
  Serious: Yes (Hospitalization)
  Sender: FDA-Public Use
  Company Number: NL-MEDIMMUNE-MEDI-0015085

PATIENT
  Age: 12 Month
  Sex: Female
  Weight: 5.8 kg

DRUGS (8)
  1. SYNAGIS [Suspect]
     Indication: EXOMPHALOS
     Route: 030
     Dates: start: 20110914, end: 20110914
  2. RANITIDINE HCL [Concomitant]
     Dosage: 1.3 ML
  3. FERRIC PYROPHOSPHATE [Concomitant]
  4. SYNAGIS [Suspect]
     Indication: BRONCHOPULMONARY DYSPLASIA
     Route: 030
     Dates: start: 20110914, end: 20110914
  5. SYNAGIS [Suspect]
     Route: 030
     Dates: start: 20120201, end: 20120201
  6. SYNAGIS [Suspect]
     Route: 030
     Dates: start: 20120227, end: 20120101
  7. SYNAGIS [Suspect]
     Route: 030
     Dates: start: 20120227, end: 20120101
  8. SYNAGIS [Suspect]
     Route: 030
     Dates: start: 20120201, end: 20120201

REACTIONS (5)
  - DIARRHOEA [None]
  - ABDOMINAL DISTENSION [None]
  - ILEUS PARALYTIC [None]
  - VOMITING [None]
  - DEHYDRATION [None]
